FAERS Safety Report 7375405-X (Version None)
Quarter: 2011Q1

REPORT INFORMATION
  Report Type: 
  Country: None (occurrence: None)
  Receive Date: 20110325
  Receipt Date: 20101110
  Transmission Date: 20110831
  Serious: Yes (Other)
  Sender: FDA-Public Use
  Company Number: PHHY2010DE90759

PATIENT

DRUGS (1)
  1. EXTAVIA [Suspect]
     Dosage: UNK
     Route: 058

REACTIONS (1)
  - HYPOAESTHESIA [None]
